FAERS Safety Report 10712163 (Version 2)
Quarter: 2015Q1

REPORT INFORMATION
  Report Type: Spontaneous
  Country: US (occurrence: US)
  Receive Date: 20150114
  Receipt Date: 20150120
  Transmission Date: 20150721
  Serious: Yes (Hospitalization)
  Sender: FDA-Public Use
  Company Number: US-AMGEN-USASP2015002429

PATIENT
  Age: 60 Year
  Sex: Female

DRUGS (9)
  1. PEGFILGRASTIM [Suspect]
     Active Substance: PEGFILGRASTIM
     Indication: PRODUCT USED FOR UNKNOWN INDICATION
     Dosage: 6 MG, 1 IN 14 D, ON DAY 2 CYCLE: 14 DAYS (CYCLES 1-4)
     Route: 058
  2. BEVACIZUMAB [Suspect]
     Active Substance: BEVACIZUMAB
     Indication: BREAST CANCER
     Dosage: 10 MG/KG, 1 IN 14 D (OVER 30-90 MIN ON DAY 1, CYCLE: 14 DAYS (CYCLES 1-4)
     Route: 042
     Dates: start: 20090305
  3. PACLITAXEL. [Suspect]
     Active Substance: PACLITAXEL
     Indication: BREAST CANCER
     Dosage: 80 MG/M2, 3 IN 1 CYCLICAL, OVER 1 HR ON DAYS 1, 8 AND 15. CYCLE = 21 DAYS (CYCLES 5-8)
     Route: 042
  4. PACLITAXEL. [Suspect]
     Active Substance: PACLITAXEL
     Dosage: UNK
     Route: 042
  5. DOXORUBICIN [Suspect]
     Active Substance: DOXORUBICIN
     Indication: BREAST CANCER
     Dosage: 60 MG/M2, 1 IN 14 D (CYCLE 14 DAYS, CYCLE:1-4)
     Route: 042
     Dates: start: 20090305
  6. BEVACIZUMAB [Suspect]
     Active Substance: BEVACIZUMAB
     Dosage: 15 MG/KG, 1 IN 21 D (OVER 30-90 MIN ON DAY 1, CYCLE: 21 DAYS) (CYCLES 5-8)
     Route: 042
  7. DOXORUBICIN [Suspect]
     Active Substance: DOXORUBICIN
     Dosage: UNK
     Route: 042
  8. CYCLOPHOSPHAMIDE. [Suspect]
     Active Substance: CYCLOPHOSPHAMIDE
     Dosage: UNK
     Route: 042
  9. CYCLOPHOSPHAMIDE. [Suspect]
     Active Substance: CYCLOPHOSPHAMIDE
     Indication: BREAST CANCER
     Dosage: 600 MG/M2, 1 IN 14 D, CYCLE 14 DAYS (CYCLE: 1-4) OVER 20-30 MIN ON DAY 1
     Route: 042
     Dates: start: 20090305

REACTIONS (1)
  - Neutrophil count decreased [Recovered/Resolved]

NARRATIVE: CASE EVENT DATE: 20090625
